FAERS Safety Report 24349744 (Version 1)
Quarter: 2024Q3

REPORT INFORMATION
  Report Type: Spontaneous
  Country: US (occurrence: US)
  Receive Date: 20240923
  Receipt Date: 20240923
  Transmission Date: 20241017
  Serious: No
  Sender: ROCHE
  Company Number: US-ROCHE-3484275

PATIENT
  Age: 72 Year
  Sex: Female

DRUGS (5)
  1. TRASTUZUMAB [Suspect]
     Active Substance: TRASTUZUMAB
     Indication: Breast cancer
     Route: 065
  2. TRASTUZUMAB [Suspect]
     Active Substance: TRASTUZUMAB
     Indication: Intraductal proliferative breast lesion
  3. LEVOTHYROXINE [Concomitant]
     Active Substance: LEVOTHYROXINE\LEVOTHYROXINE SODIUM
     Dosage: DOSE WAS TAPERED FROM 100 MCG DAILY TO 25 MCG DAILY
     Dates: end: 202206
  4. CARVEDILOL [Concomitant]
     Active Substance: CARVEDILOL
  5. METHIMAZOLE [Concomitant]
     Active Substance: METHIMAZOLE

REACTIONS (2)
  - Graves^ disease [Unknown]
  - Viral upper respiratory tract infection [Unknown]
